FAERS Safety Report 19628471 (Version 1)
Quarter: 2021Q3

REPORT INFORMATION
  Report Type: Spontaneous
  Country: US (occurrence: US)
  Receive Date: 20210728
  Receipt Date: 20210728
  Transmission Date: 20211014
  Serious: Yes (Hospitalization)
  Sender: FDA-Public Use
  Company Number: US-PFIZER INC-2021888368

PATIENT
  Age: 70 Year
  Sex: Female
  Weight: 44.91 kg

DRUGS (1)
  1. VFEND [Suspect]
     Active Substance: VORICONAZOLE
     Indication: ACUTE MYELOID LEUKAEMIA
     Dosage: 200 MG, 2X/DAY
     Route: 048
     Dates: start: 2020

REACTIONS (7)
  - Pyrexia [Unknown]
  - Off label use [Unknown]
  - White blood cell count decreased [Unknown]
  - Drug ineffective [Unknown]
  - Bacterial test positive [Unknown]
  - Blood count abnormal [Not Recovered/Not Resolved]
  - Immune system disorder [Unknown]

NARRATIVE: CASE EVENT DATE: 2020
